FAERS Safety Report 4314618-8 (Version None)
Quarter: 2004Q1

REPORT INFORMATION
  Report Type: 
  Country: None (occurrence: None)
  Receive Date: 20040308
  Receipt Date: 20040224
  Transmission Date: 20041129
  Serious: Yes (Hospitalization)
  Sender: FDA-Public Use
  Company Number: 04P-056-0251655-00

PATIENT
  Age: 62 Year
  Sex: Male

DRUGS (17)
  1. ERYTHROCINE(E.E.S. ) (ERYTHROMYCIN ETHYLSUCCINATE) (ERYTHOMYCIN [Suspect]
     Dosage: 100 MG, 3 IN 1 D, PER ORAL
     Route: 048
     Dates: start: 20031031, end: 20031209
  2. TRIMBUTINE MALEATE [Suspect]
     Dosage: 100 MG, 3 IN 1 D
     Dates: start: 20031110, end: 20031229
  3. DANTROLENE [Suspect]
     Dosage: 50 MG, 3 IN 1 D, PER ORAL
     Route: 048
     Dates: start: 20030925, end: 20031209
  4. HYDROXYZINE HYDROCHLORIDE [Concomitant]
  5. BENSERAZIDE [Concomitant]
  6. BACLOFEN [Concomitant]
  7. OMEPRAZOLE [Concomitant]
  8. POTASSIUM [Concomitant]
  9. ALMITRINE DIMESILATE [Concomitant]
  10. FUROSEMIDE [Concomitant]
  11. MACROGOL [Concomitant]
  12. ACETAMINOPHEN [Concomitant]
  13. HEPARIN [Concomitant]
  14. DOMPERIDONE [Concomitant]
  15. GAVISCON [Concomitant]
  16. CEFOTAXIME [Concomitant]
  17. GENTAMICIN [Concomitant]

REACTIONS (4)
  - BLOOD CULTURE POSITIVE [None]
  - PANCYTOPENIA [None]
  - PYREXIA [None]
  - URINARY TRACT INFECTION [None]
